FAERS Safety Report 6110417-5 (Version None)
Quarter: 2009Q1

REPORT INFORMATION
  Report Type: 
  Country: None (occurrence: None)
  Receive Date: 20090310
  Receipt Date: 20090227
  Transmission Date: 20090719
  Serious: Yes (Life-Threatening)
  Sender: FDA-Public Use
  Company Number: JP-SANOFI-SYNTHELABO-A01200814349

PATIENT
  Sex: Female
  Weight: 42 kg

DRUGS (14)
  1. FLUOROURACIL [Suspect]
     Dosage: 500 MG
     Route: 040
     Dates: start: 20081031, end: 20081031
  2. FLUOROURACIL [Suspect]
     Dosage: 3000 MG
     Route: 041
     Dates: start: 20081031, end: 20081101
  3. CALCIUM LEVOFOLINATE [Suspect]
     Dosage: 250 MG
     Route: 041
     Dates: start: 20081031, end: 20081031
  4. OXALIPLATIN [Suspect]
     Indication: RECTAL CANCER
     Dosage: 100 MG
     Route: 041
     Dates: start: 20081031, end: 20081031
  5. POTASSIUM CHLORIDE [Concomitant]
     Indication: METABOLIC ACIDOSIS
     Route: 042
     Dates: start: 20081103, end: 20081104
  6. 10% SODIUM CHLORIDE [Concomitant]
     Indication: METABOLIC ACIDOSIS
     Route: 041
     Dates: start: 20081103, end: 20081104
  7. DEXTROSE 5% [Concomitant]
     Indication: METABOLIC ACIDOSIS
     Route: 041
     Dates: start: 20081103, end: 20081103
  8. DEXTROSE 5% [Concomitant]
     Route: 041
     Dates: start: 20081103, end: 20081104
  9. SODIUM BICARBONATE [Concomitant]
     Indication: METABOLIC ACIDOSIS
     Dosage: 250 ML
     Route: 041
     Dates: start: 20081102, end: 20081102
  10. SODIUM BICARBONATE [Concomitant]
     Route: 041
     Dates: start: 20081105, end: 20081105
  11. ISOTONIC SODIUM CHLORIDE SOLUTION [Concomitant]
     Indication: METABOLIC ACIDOSIS
     Dosage: 500ML TID, QID, BID
     Route: 041
     Dates: start: 20081102, end: 20081105
  12. DEXAMETHASONE SODIUM PHOSPHATE [Concomitant]
     Indication: PREMEDICATION
     Dosage: 8 MG
     Route: 041
     Dates: start: 20081001, end: 20081031
  13. GRANISETRON HYDROCHLORIDE [Concomitant]
     Indication: PREMEDICATION
     Dosage: 3 MG
     Route: 041
     Dates: start: 20081001, end: 20081031
  14. BEVACIZUMAB [Concomitant]
     Indication: RECTAL CANCER
     Dosage: 200 MG
     Route: 041
     Dates: start: 20081003, end: 20081003

REACTIONS (1)
  - HYPERAMMONAEMIA [None]
